FAERS Safety Report 13711941 (Version 1)
Quarter: 2017Q3

REPORT INFORMATION
  Report Type: Spontaneous
  Country: US (occurrence: US)
  Receive Date: 20170703
  Receipt Date: 20170703
  Transmission Date: 20171127
  Serious: Yes (Other)
  Sender: FDA-Public Use
  Company Number: None

PATIENT
  Age: 18 Year
  Sex: Female
  Weight: 54 kg

DRUGS (1)
  1. DEPO-PROVERA [Suspect]
     Active Substance: MEDROXYPROGESTERONE ACETATE
     Indication: CONTRACEPTION
     Dosage: ?          QUANTITY:3 SUPPOSITORY(IES);OTHER FREQUENCY:EVERY 3 MONTHS;?
     Route: 030
     Dates: start: 20151201, end: 20160601

REACTIONS (2)
  - Vulvovaginal swelling [None]
  - Dyspareunia [None]

NARRATIVE: CASE EVENT DATE: 20160801
